FAERS Safety Report 7053594-4 (Version None)
Quarter: 2010Q4

REPORT INFORMATION
  Report Type: 
  Country: None (occurrence: None)
  Receive Date: 20101020
  Receipt Date: 20101011
  Transmission Date: 20110411
  Serious: Yes (Hospitalization)
  Sender: FDA-Public Use
  Company Number: US-ROCHE-732681

PATIENT
  Sex: Male
  Weight: 75 kg

DRUGS (8)
  1. PEGASYS [Suspect]
     Indication: HEPATITIS C
     Route: 058
     Dates: start: 20100101
  2. RIBAVIRIN [Suspect]
     Indication: HEPATITIS C
     Route: 048
     Dates: start: 20100101
  3. LITHIUM [Concomitant]
  4. DEPAKOTE [Concomitant]
  5. SYNTHROID [Concomitant]
  6. LORTAB [Concomitant]
  7. DILAUDID [Concomitant]
  8. ADVIT [Concomitant]

REACTIONS (4)
  - LOSS OF CONSCIOUSNESS [None]
  - PNEUMONIA [None]
  - PULMONARY THROMBOSIS [None]
  - WEIGHT DECREASED [None]
